FAERS Safety Report 4558830-1 (Version None)
Quarter: 2005Q1

REPORT INFORMATION
  Report Type: 
  Country: None (occurrence: None)
  Receive Date: 20050121
  Receipt Date: 20050113
  Transmission Date: 20050727
  Serious: Yes (Hospitalization, Other)
  Sender: FDA-Public Use
  Company Number: MU-GLAXOSMITHKLINE-B0364989A

PATIENT
  Sex: Female

DRUGS (2)
  1. ZINNAT [Suspect]
  2. SERETIDE [Concomitant]
     Route: 055

REACTIONS (4)
  - BRONCHOSPASM [None]
  - PARALYSIS [None]
  - PHARMACEUTICAL PRODUCT COMPLAINT [None]
  - SHOCK [None]
